FAERS Safety Report 8803144 (Version 1)
Quarter: 2012Q4

REPORT INFORMATION
  Report Type: 
  Country: HU (occurrence: HU)
  Receive Date: 20120924
  Receipt Date: 20120924
  Transmission Date: 20130627
  Serious: Yes (Other)
  Sender: FDA-Public Use
  Company Number: HU-PFIZER INC-2012233256

PATIENT
  Age: 65 Year
  Sex: Male
  Weight: 118 kg

DRUGS (24)
  1. LYRICA [Suspect]
     Indication: NEURALGIA
     Dosage: 150 mg, 2x/day
     Dates: start: 2009
  2. INSULATARD [Concomitant]
     Dosage: UNK
     Dates: start: 201208
  3. ACTRAPID [Concomitant]
     Dosage: UNK
     Dates: start: 201208
  4. THEOSPIREX [Concomitant]
     Dosage: UNK
  5. INDAPAMIDE/PERINDOPRIL ARGININE [Concomitant]
     Dosage: UNK
  6. TRIMETAZIDINE [Concomitant]
     Dosage: UNK
  7. DOXAZOSIN [Concomitant]
     Dosage: UNK
  8. THIOGAMMA [Concomitant]
     Dosage: UNK
  9. NITRODERM TTS [Concomitant]
     Dosage: UNK
     Dates: start: 2011
  10. CLEXANE [Concomitant]
     Dosage: UNK
     Dates: start: 2011
  11. PANTOPRAZOLE [Concomitant]
     Dosage: UNK
     Dates: start: 2011
  12. SEREVENT [Concomitant]
     Dosage: UNK
  13. SPIRIVA [Concomitant]
     Dosage: UNK
  14. KALDYUM [Concomitant]
     Dosage: UNK
  15. FURON [Concomitant]
     Dosage: UNK
  16. CORDAFLEX [Concomitant]
     Dosage: UNK
  17. NEBIVOLOL [Concomitant]
     Dosage: UNK
  18. APRANAX [Concomitant]
     Dosage: UNK
  19. SABAL SERRULATUM EXTRACT [Concomitant]
     Dosage: UNK
  20. SILEGON [Concomitant]
     Dosage: UNK
  21. INSULIN DETEMIR [Concomitant]
     Dosage: UNK
     Dates: end: 201208
  22. NOVORAPID [Concomitant]
     Dosage: UNK
     Dates: end: 201208
  23. SYNCUMAR [Concomitant]
     Dosage: UNK
     Dates: end: 2011
  24. RIVOTRIL [Concomitant]
     Dosage: UNK

REACTIONS (41)
  - Mental impairment [Not Recovered/Not Resolved]
  - Arrhythmia [Not Recovered/Not Resolved]
  - Platelet count decreased [Not Recovered/Not Resolved]
  - Blood pressure increased [Not Recovered/Not Resolved]
  - Dry mouth [Not Recovered/Not Resolved]
  - Weight increased [Not Recovered/Not Resolved]
  - Hunger [Not Recovered/Not Resolved]
  - Fluid retention [Not Recovered/Not Resolved]
  - Dyspnoea [Not Recovered/Not Resolved]
  - Restlessness [Not Recovered/Not Resolved]
  - Aphasia [Not Recovered/Not Resolved]
  - Amnesia [Not Recovered/Not Resolved]
  - Abnormal dreams [Not Recovered/Not Resolved]
  - Hypoaesthesia [Not Recovered/Not Resolved]
  - Visual impairment [Not Recovered/Not Resolved]
  - Hyperacusis [Not Recovered/Not Resolved]
  - Dry eye [Not Recovered/Not Resolved]
  - Lacrimation increased [Not Recovered/Not Resolved]
  - Nasal dryness [Not Recovered/Not Resolved]
  - Dyspepsia [Not Recovered/Not Resolved]
  - Abdominal distension [Not Recovered/Not Resolved]
  - Hyperhidrosis [Not Recovered/Not Resolved]
  - Chills [Not Recovered/Not Resolved]
  - Joint swelling [Not Recovered/Not Resolved]
  - Muscle spasms [Not Recovered/Not Resolved]
  - Arthralgia [Not Recovered/Not Resolved]
  - Back pain [Not Recovered/Not Resolved]
  - Dysuria [Not Recovered/Not Resolved]
  - Micturition disorder [Not Recovered/Not Resolved]
  - Thirst [Not Recovered/Not Resolved]
  - Blood test abnormal [Not Recovered/Not Resolved]
  - Peripheral coldness [Not Recovered/Not Resolved]
  - Nasal congestion [Not Recovered/Not Resolved]
  - Photopsia [Not Recovered/Not Resolved]
  - Dysphagia [Not Recovered/Not Resolved]
  - Neck pain [Not Recovered/Not Resolved]
  - Blood glucose increased [Not Recovered/Not Resolved]
  - White blood cell count decreased [Not Recovered/Not Resolved]
  - Eye inflammation [Not Recovered/Not Resolved]
  - Diarrhoea [Not Recovered/Not Resolved]
  - Somnolence [Not Recovered/Not Resolved]
